FAERS Safety Report 9752550 (Version 1)
Quarter: 2013Q4

REPORT INFORMATION
  Report Type: Spontaneous
  Country: FR (occurrence: FR)
  Receive Date: 20131213
  Receipt Date: 20131213
  Transmission Date: 20140711
  Serious: Yes (Hospitalization)
  Sender: FDA-Public Use
  Company Number: FR-JNJFOC-20131205371

PATIENT
  Age: 59 Year
  Sex: Female

DRUGS (8)
  1. REMICADE [Suspect]
     Indication: CROHN^S DISEASE
     Route: 042
     Dates: start: 201002, end: 20130917
  2. CALCIUM ACETATE [Concomitant]
     Route: 065
  3. COUMADIN [Concomitant]
     Route: 065
  4. OMEPRAZOLE [Concomitant]
     Route: 065
  5. AMLOR [Concomitant]
     Route: 065
  6. HYPERIUM [Concomitant]
     Route: 065
  7. ATARAX [Concomitant]
     Route: 065
  8. ZYRTEC [Concomitant]
     Route: 065

REACTIONS (1)
  - Tonsil cancer [Not Recovered/Not Resolved]
